FAERS Safety Report 6044491-1 (Version None)
Quarter: 2009Q1

REPORT INFORMATION
  Report Type: 
  Country: None (occurrence: None)
  Receive Date: 20090120
  Receipt Date: 20090106
  Transmission Date: 20090719
  Serious: Yes (Other)
  Sender: FDA-Public Use
  Company Number: KR-PFIZER INC-2009151743

PATIENT

DRUGS (3)
  1. METRONIDAZOLE AND METRONIDAZOLE BENZOATE AND METRONIDAZOLE HYDROCHLORI [Suspect]
     Indication: FEMALE GENITAL TRACT FISTULA
     Dosage: UNK
  2. MESALAZINE [Concomitant]
     Indication: FEMALE GENITAL TRACT FISTULA
     Dosage: UNK
  3. CIPROFLOXACIN [Concomitant]
     Indication: FEMALE GENITAL TRACT FISTULA
     Dosage: UNK

REACTIONS (1)
  - ENCEPHALOPATHY [None]
